FAERS Safety Report 21589750 (Version 1)
Quarter: 2022Q4

REPORT INFORMATION
  Report Type: Spontaneous
  Country: US (occurrence: US)
  Receive Date: 20221114
  Receipt Date: 20221114
  Transmission Date: 20230113
  Serious: Yes (Death, Life-Threatening, Hospitalization)
  Sender: FDA-Public Use
  Company Number: US-TORRENT-00012076

PATIENT
  Age: 80 Year
  Sex: Male

DRUGS (1)
  1. ITRACONAZOLE [Suspect]
     Active Substance: ITRACONAZOLE
     Indication: Fungal infection
     Dosage: UNKNOWN
     Route: 065

REACTIONS (1)
  - Drug ineffective [Fatal]
